FAERS Safety Report 23557223 (Version 2)
Quarter: 2024Q1

REPORT INFORMATION
  Report Type: Report from Study
  Country: CA (occurrence: CA)
  Receive Date: 20240223
  Receipt Date: 20240326
  Transmission Date: 20240409
  Serious: Yes (Hospitalization)
  Sender: FDA-Public Use
  Company Number: CA-BoehringerIngelheim-2023-BI-279588

PATIENT
  Age: 70 Year
  Sex: Male

DRUGS (1)
  1. OFEV [Suspect]
     Active Substance: NINTEDANIB
     Indication: Interstitial lung disease
     Route: 048
     Dates: start: 20231218

REACTIONS (5)
  - Abdominal pain upper [Unknown]
  - Blood pressure abnormal [Unknown]
  - Cardiac disorder [Unknown]
  - Abdominal discomfort [Recovered/Resolved with Sequelae]
  - Drug intolerance [Unknown]

NARRATIVE: CASE EVENT DATE: 20231201
